FAERS Safety Report 19909949 (Version 1)
Quarter: 2021Q4

REPORT INFORMATION
  Report Type: Report from Study
  Country: JP (occurrence: JP)
  Receive Date: 20211003
  Receipt Date: 20211003
  Transmission Date: 20220303
  Serious: Yes (Other)
  Sender: FDA-Public Use
  Company Number: JP-NOVARTISPH-NVSJ2021JP014595

PATIENT
  Age: 67 Year
  Sex: Male

DRUGS (1)
  1. EZETIMIBE [Suspect]
     Active Substance: EZETIMIBE
     Indication: Product used for unknown indication
     Dosage: UNK
     Route: 048

REACTIONS (6)
  - Myocardial infarction [Unknown]
  - Ischaemic stroke [Recovered/Resolved]
  - Ischaemic stroke [Unknown]
  - Transient ischaemic attack [Recovered/Resolved]
  - Transient ischaemic attack [Unknown]
  - Coronary artery disease [Unknown]
